FAERS Safety Report 22276004 (Version 1)
Quarter: 2023Q2

REPORT INFORMATION
  Report Type: Spontaneous
  Country: US (occurrence: None)
  Receive Date: 20230501
  Receipt Date: 20230501
  Transmission Date: 20230721
  Serious: Yes (Other)
  Sender: FDA-Public Use
  Company Number: None

PATIENT
  Age: 36 Year
  Sex: Female

DRUGS (1)
  1. TUBERSOL [Suspect]
     Active Substance: TUBERCULIN PURIFIED PROTEIN DERIVATIVE
     Indication: Tuberculin test
     Dosage: FREQUENCY : ONCE;?
     Route: 023
     Dates: start: 20220823, end: 20220823

REACTIONS (2)
  - Rash [None]
  - Emotional distress [None]

NARRATIVE: CASE EVENT DATE: 20220905
